FAERS Safety Report 7718504-2 (Version None)
Quarter: 2011Q3

REPORT INFORMATION
  Report Type: 
  Country: None (occurrence: None)
  Receive Date: 20110830
  Receipt Date: 20110826
  Transmission Date: 20111222
  Serious: Yes (Other)
  Sender: FDA-Public Use
  Company Number: US-PFIZER INC-2011199459

PATIENT

DRUGS (1)
  1. NEURONTIN [Suspect]
     Indication: NEURALGIA
     Dosage: 200MG AND 300MG TWO TIMES A DAY
     Dates: start: 20110808

REACTIONS (4)
  - LYMPHADENOPATHY [None]
  - NASAL OEDEMA [None]
  - LOCAL SWELLING [None]
  - SKIN LESION [None]
